FAERS Safety Report 12762564 (Version 1)
Quarter: 2016Q3

REPORT INFORMATION
  Report Type: Spontaneous
  Country: US (occurrence: US)
  Receive Date: 20160915
  Receipt Date: 20160915
  Transmission Date: 20161109
  Serious: No
  Sender: FDA-Public Use
  Company Number: None

PATIENT
  Sex: Male

DRUGS (1)
  1. DOFETILIDE. [Suspect]
     Active Substance: DOFETILIDE
     Route: 048
     Dates: start: 20160624

REACTIONS (5)
  - Dizziness [None]
  - Headache [None]
  - Eyelid pain [None]
  - Visual impairment [None]
  - Product substitution issue [None]
